FAERS Safety Report 7211180-7 (Version None)
Quarter: 2011Q1

REPORT INFORMATION
  Report Type: 
  Country: None (occurrence: None)
  Receive Date: 20110105
  Receipt Date: 20101110
  Transmission Date: 20110831
  Serious: Yes (Hospitalization)
  Sender: FDA-Public Use
  Company Number: JP-MERCK-1011USA01732

PATIENT
  Age: 77 Year
  Sex: Female

DRUGS (3)
  1. AMARYL [Suspect]
     Route: 048
     Dates: end: 20091101
  2. JANUVIA [Suspect]
     Indication: TYPE 2 DIABETES MELLITUS
     Route: 048
     Dates: start: 20091201, end: 20100101
  3. AMARYL [Suspect]
     Route: 048
     Dates: end: 20091101

REACTIONS (2)
  - DIARRHOEA [None]
  - HYPOGLYCAEMIA [None]
